FAERS Safety Report 6076175-8 (Version None)
Quarter: 2009Q1

REPORT INFORMATION
  Report Type: 
  Country: None (occurrence: None)
  Receive Date: 20090212
  Receipt Date: 20090129
  Transmission Date: 20090719
  Serious: Yes (Other)
  Sender: FDA-Public Use
  Company Number: JP-B.I. PHARMACEUTICALS,INC./RIDGEFIELD-2008-DE-07097GD

PATIENT
  Sex: Female

DRUGS (8)
  1. PRAMIPEXOLE DIHYDROCHLORIDE [Suspect]
     Indication: PARKINSON'S DISEASE
     Dosage: 1MG
     Route: 048
     Dates: start: 20061130, end: 20080509
  2. PRAMIPEXOLE DIHYDROCHLORIDE [Suspect]
     Dosage: 1MG
     Dates: start: 20070201, end: 20080501
  3. ASPIRIN [Concomitant]
     Dosage: 100MG
     Route: 048
     Dates: start: 20040315
  4. ITOROL [Concomitant]
     Dosage: 40MG
     Route: 048
     Dates: start: 20040315
  5. LANDEL [Concomitant]
     Dosage: 20MG
     Route: 048
     Dates: start: 20040315
  6. SIGMART [Concomitant]
     Dosage: 15MG
     Route: 048
     Dates: start: 20040315
  7. MUCOSTA [Concomitant]
     Dosage: 100MG
     Route: 048
     Dates: start: 20040315
  8. NITRODERM [Concomitant]
     Dosage: 1ANZ
     Route: 062
     Dates: start: 20040315

REACTIONS (2)
  - NECK PAIN [None]
  - POSTURE ABNORMAL [None]
